FAERS Safety Report 24384582 (Version 5)
Quarter: 2025Q1

REPORT INFORMATION
  Report Type: Spontaneous
  Country: US (occurrence: US)
  Receive Date: 20241001
  Receipt Date: 20250331
  Transmission Date: 20250409
  Serious: No
  Sender: PFIZER
  Company Number: US-BRISTOL-MYERS SQUIBB COMPANY-2024-153137

PATIENT
  Age: 68 Year
  Sex: Male

DRUGS (6)
  1. ELIQUIS [Interacting]
     Active Substance: APIXABAN
  2. TUKYSA [Interacting]
     Active Substance: TUCATINIB
     Dosage: 150 MG, 2X/DAY
  3. TUKYSA [Interacting]
     Active Substance: TUCATINIB
     Dosage: TWO 150MG TABLETS TWICE DAILY
     Dates: start: 202409, end: 202502
  4. HYDROCODONE [Interacting]
     Active Substance: HYDROCODONE
  5. CAPECITABINE [Concomitant]
     Active Substance: CAPECITABINE
  6. HERCEPTIN [Concomitant]
     Active Substance: TRASTUZUMAB

REACTIONS (1)
  - Drug interaction [Unknown]
